FAERS Safety Report 5054713-1 (Version None)
Quarter: 2006Q3

REPORT INFORMATION
  Report Type: 
  Country: None (occurrence: None)
  Receive Date: 20060719
  Receipt Date: 20060711
  Transmission Date: 20061208
  Serious: Yes (Other)
  Sender: FDA-Public Use
  Company Number: DK-BRISTOL-MYERS SQUIBB COMPANY-13439641

PATIENT
  Age: 38 Year
  Sex: Female

DRUGS (6)
  1. ABILIFY [Suspect]
     Dates: start: 20050601
  2. ZYPREXA [Concomitant]
  3. REMERON [Concomitant]
  4. NITRAZEPAM [Concomitant]
  5. IKTORIVIL [Concomitant]
  6. NORFLEX [Concomitant]

REACTIONS (2)
  - ALOPECIA [None]
  - BREAST CANCER [None]
